FAERS Safety Report 9392151 (Version 1)
Quarter: 2013Q3

REPORT INFORMATION
  Report Type: Spontaneous
  Country: AT (occurrence: AT)
  Receive Date: 20130709
  Receipt Date: 20130709
  Transmission Date: 20140515
  Serious: Yes (Other)
  Sender: FDA-Public Use
  Company Number: AT-ABBOTT-13X-009-1111354-00

PATIENT
  Age: 65 Year
  Sex: Female

DRUGS (26)
  1. DEPAKINE CHRONO RETARD [Suspect]
     Indication: PRODUCT USED FOR UNKNOWN INDICATION
     Dates: start: 20130404, end: 20130407
  2. DEPAKINE CHRONO RETARD [Interacting]
     Dates: start: 20130408, end: 20130410
  3. DEPAKINE CHRONO RETARD [Interacting]
     Dates: start: 20130411, end: 20130425
  4. DEPAKINE CHRONO RETARD [Interacting]
     Dates: start: 20130426
  5. DEPAKINE CHRONO RETARD [Interacting]
     Dates: start: 20130513
  6. FOLSAN [Suspect]
     Indication: PRODUCT USED FOR UNKNOWN INDICATION
     Dates: start: 2012
  7. PANTOLOC [Suspect]
     Dates: start: 2012, end: 20130329
  8. PANTOLOC [Suspect]
     Dates: start: 20130330
  9. NOCUTIL [Suspect]
     Indication: PRODUCT USED FOR UNKNOWN INDICATION
     Dates: start: 2012
  10. VENLAFAXINE [Suspect]
     Indication: PRODUCT USED FOR UNKNOWN INDICATION
     Dates: start: 201210, end: 20130311
  11. VENLAFAXINE [Suspect]
     Dates: start: 20130312, end: 20130423
  12. VENLAFAXINE [Suspect]
     Dates: end: 20130511
  13. QUETIAPINE [Suspect]
     Indication: PRODUCT USED FOR UNKNOWN INDICATION
     Dates: start: 20130311, end: 20130314
  14. QUETIAPINE [Suspect]
     Dates: start: 20130314, end: 20130514
  15. QUETIAPINE [Suspect]
     Dates: start: 20130515
  16. ACEMIN [Suspect]
     Indication: HYPERTENSION
     Dates: start: 20130324, end: 20130429
  17. PLAVIX [Suspect]
     Indication: PRODUCT USED FOR UNKNOWN INDICATION
     Route: 048
     Dates: start: 20130325
  18. LAMICTAL [Interacting]
     Indication: PRODUCT USED FOR UNKNOWN INDICATION
     Dates: start: 201210, end: 20130417
  19. LAMICTAL [Interacting]
     Dates: start: 20130418, end: 20130422
  20. RIVOTRIL [Suspect]
     Indication: PRODUCT USED FOR UNKNOWN INDICATION
  21. ATORVASTATIN [Concomitant]
     Indication: PRODUCT USED FOR UNKNOWN INDICATION
     Dates: start: 20130322
  22. MAGNESIUM CARBONATE/MAGNESIUM OXIDE [Concomitant]
     Indication: PRODUCT USED FOR UNKNOWN INDICATION
     Dates: start: 2012
  23. NEUROBION FORTE [Concomitant]
     Indication: PRODUCT USED FOR UNKNOWN INDICATION
     Dates: start: 2012
  24. NITROLINGUAL [Concomitant]
     Indication: PRODUCT USED FOR UNKNOWN INDICATION
     Dates: start: 2012
  25. SEROQUEL [Concomitant]
     Indication: PRODUCT USED FOR UNKNOWN INDICATION
     Dates: start: 20130307, end: 20130314
  26. ZOLPIDEM [Concomitant]
     Indication: PRODUCT USED FOR UNKNOWN INDICATION
     Dates: start: 20130318, end: 20130513

REACTIONS (10)
  - Carotid artery thrombosis [Unknown]
  - Dysgeusia [Recovering/Resolving]
  - Cerebral atrophy [Unknown]
  - Dry mouth [Unknown]
  - Nausea [Unknown]
  - Bacterial vaginosis [Unknown]
  - Vaginal discharge [Unknown]
  - Cerebral microangiopathy [Unknown]
  - Atrophic vulvovaginitis [Unknown]
  - Drug interaction [Unknown]
